FAERS Safety Report 6936013-5 (Version None)
Quarter: 2010Q3

REPORT INFORMATION
  Report Type: 
  Country: None (occurrence: None)
  Receive Date: 20100823
  Receipt Date: 20100817
  Transmission Date: 20110219
  Serious: Yes (Death)
  Sender: FDA-Public Use
  Company Number: BE-ASTRAZENECA-2010SE38542

PATIENT
  Age: 6 Week

DRUGS (1)
  1. SEROQUEL XR [Suspect]
     Route: 064

REACTIONS (2)
  - CARDIAC ARREST [None]
  - KARYOTYPE ANALYSIS ABNORMAL [None]
